FAERS Safety Report 7658411-7 (Version None)
Quarter: 2011Q3

REPORT INFORMATION
  Report Type: 
  Country: None (occurrence: None)
  Receive Date: 20110805
  Receipt Date: 20110728
  Transmission Date: 20111222
  Serious: Yes (Hospitalization)
  Sender: FDA-Public Use
  Company Number: US-ASTELLAS-2011US003496

PATIENT
  Sex: Male
  Weight: 84 kg

DRUGS (4)
  1. ERLOTINIB HYDROCHLORIDE [Suspect]
     Indication: ACUTE MYELOID LEUKAEMIA
     Dosage: 150 MG, UID/QD
     Route: 048
     Dates: start: 20100824, end: 20100913
  2. ETHAMBUTOL HYDROCHLORIDE [Concomitant]
     Indication: TUBERCULOSIS
     Dosage: UNK DF, UNKNOWN/D
  3. ISONIAZID [Concomitant]
     Indication: TUBERCULOSIS
     Dosage: UNK
     Route: 065
  4. RIFAMPIN [Concomitant]
     Indication: TUBERCULOSIS
     Dosage: UNK

REACTIONS (5)
  - PANCYTOPENIA [None]
  - DIARRHOEA [None]
  - DISEASE PROGRESSION [None]
  - ASTHENIA [None]
  - FEBRILE NEUTROPENIA [None]
